FAERS Safety Report 19034405 (Version 3)
Quarter: 2021Q2

REPORT INFORMATION
  Report Type: Spontaneous
  Country: US (occurrence: US)
  Receive Date: 20210320
  Receipt Date: 20210507
  Transmission Date: 20210717
  Serious: No
  Sender: FDA-Public Use
  Company Number: US-SA-2021SA080226

PATIENT
  Age: 79 Year
  Sex: Female

DRUGS (1)
  1. XYZAL [Suspect]
     Active Substance: LEVOCETIRIZINE DIHYDROCHLORIDE
     Indication: SEASONAL ALLERGY
     Dosage: 5 MG, QD DRUG STRUCTURE DOSAGE : 5 MG DRUG INTERVAL DOSAGE : ONCE DAILY PRN
     Dates: start: 20210307, end: 20210307

REACTIONS (4)
  - Condition aggravated [Recovered/Resolved]
  - Respiration abnormal [Recovered/Resolved]
  - Emphysema [Recovered/Resolved]
  - Feeling abnormal [Recovered/Resolved]

NARRATIVE: CASE EVENT DATE: 20210307
